FAERS Safety Report 13875065 (Version 1)
Quarter: 2017Q3

REPORT INFORMATION
  Report Type: Spontaneous
  Country: US (occurrence: US)
  Receive Date: 20170816
  Receipt Date: 20170816
  Transmission Date: 20171127
  Serious: No
  Sender: FDA-Public Use
  Company Number: US-ROCHE-1136551

PATIENT
  Sex: Female

DRUGS (2)
  1. LUCENTIS [Suspect]
     Active Substance: RANIBIZUMAB
     Indication: NEOVASCULAR AGE-RELATED MACULAR DEGENERATION
     Route: 050
  2. AFLIBERCEPT [Suspect]
     Active Substance: AFLIBERCEPT
     Indication: NEOVASCULAR AGE-RELATED MACULAR DEGENERATION
     Route: 050

REACTIONS (7)
  - Eye pruritus [Unknown]
  - Eye contusion [Not Recovered/Not Resolved]
  - Rhinorrhoea [Unknown]
  - Eye swelling [Not Recovered/Not Resolved]
  - Eye disorder [Unknown]
  - Neovascular age-related macular degeneration [Not Recovered/Not Resolved]
  - Lacrimation increased [Unknown]
